FAERS Safety Report 25025359 (Version 1)
Quarter: 2025Q1

REPORT INFORMATION
  Report Type: Spontaneous
  Country: FR (occurrence: FR)
  Receive Date: 20250228
  Receipt Date: 20250228
  Transmission Date: 20250408
  Serious: Yes (Other)
  Sender: TEVA
  Company Number: None

PATIENT
  Age: 90 Year
  Sex: Female

DRUGS (1)
  1. ESCITALOPRAM [Suspect]
     Active Substance: ESCITALOPRAM OXALATE
     Indication: Depression
     Route: 048
     Dates: start: 20240701, end: 20250207

REACTIONS (2)
  - Bipolar I disorder [Not Recovered/Not Resolved]
  - Impulse-control disorder [Not Recovered/Not Resolved]

NARRATIVE: CASE EVENT DATE: 20250101
